FAERS Safety Report 9136356 (Version 1)
Quarter: 2013Q1

REPORT INFORMATION
  Report Type: Spontaneous
  Country: US (occurrence: US)
  Receive Date: 20130219
  Receipt Date: 20130219
  Transmission Date: 20140127
  Serious: No
  Sender: FDA-Public Use
  Company Number: US-BRISTOL-MYERS SQUIBB COMPANY-16523128

PATIENT
  Age: 34 Year
  Sex: Female
  Weight: 81.63 kg

DRUGS (2)
  1. ORENCIA FOR INJ [Suspect]
     Indication: RHEUMATOID ARTHRITIS
     Dosage: LOADING DOSE WAS ON 02APR2012
     Route: 058
     Dates: start: 20120403
  2. PREDNISONE [Concomitant]
     Dosage: INCREASED TO 15 MG OR 20 MG

REACTIONS (1)
  - Injection site inflammation [Unknown]
